FAERS Safety Report 4364421-8 (Version None)
Quarter: 2004Q2

REPORT INFORMATION
  Report Type: 
  Country: None (occurrence: None)
  Receive Date: 20040521
  Receipt Date: 20040511
  Transmission Date: 20050107
  Serious: Yes (Other)
  Sender: FDA-Public Use
  Company Number: 2004031851

PATIENT
  Age: 78 Year
  Sex: Female
  Weight: 53.5244 kg

DRUGS (2)
  1. NEOSPORIN [Suspect]
     Indication: EXCORIATION
     Dosage: TOPICAL
     Route: 061
     Dates: start: 19990101, end: 19990101
  2. VITAMINS (VITAMINS) [Concomitant]

REACTIONS (2)
  - ERYTHEMA [None]
  - INFECTION [None]
